FAERS Safety Report 10101215 (Version 2)
Quarter: 2014Q2

REPORT INFORMATION
  Report Type: Spontaneous
  Country: JP (occurrence: JP)
  Receive Date: 20140424
  Receipt Date: 20140424
  Transmission Date: 20141212
  Serious: Yes (Death, Hospitalization)
  Sender: FDA-Public Use
  Company Number: JP-ASTRAZENECA-2014SE24274

PATIENT
  Age: 73 Year
  Sex: Female

DRUGS (3)
  1. ARIMIDEX [Suspect]
     Indication: BREAST CANCER
     Route: 048
     Dates: start: 20110319, end: 20121218
  2. CRESTOR [Suspect]
     Dosage: DOSE UNKNOWN
     Route: 048
  3. FARESTON [Concomitant]
     Dates: start: 20130212, end: 201304

REACTIONS (3)
  - Death [Fatal]
  - Fracture [Unknown]
  - Osteoporosis [Unknown]
